FAERS Safety Report 6425867-7 (Version None)
Quarter: 2009Q4

REPORT INFORMATION
  Report Type: 
  Country: None (occurrence: None)
  Receive Date: 20091103
  Receipt Date: 20090915
  Transmission Date: 20100525
  Serious: No
  Sender: FDA-Public Use
  Company Number: US-ABBOTT-09P-163-0598272-00

PATIENT
  Sex: Female
  Weight: 95.34 kg

DRUGS (10)
  1. BIAXIN [Suspect]
     Indication: SINUSITIS
     Dosage: UNKNOWN DOSE, UNKNOWN MANUFACTURER
     Route: 048
     Dates: start: 20090601, end: 20090601
  2. METHOTREXATE [Concomitant]
     Indication: RHEUMATOID ARTHRITIS
  3. FOLIC ACID [Concomitant]
     Indication: RHEUMATOID ARTHRITIS
  4. LYRICA [Concomitant]
     Indication: NEURALGIA
  5. ENJUVIA [Concomitant]
     Indication: DRUG USE FOR UNKNOWN INDICATION
  6. PROZAC [Concomitant]
     Indication: DRUG USE FOR UNKNOWN INDICATION
  7. VOLTAREN [Concomitant]
     Indication: DRUG USE FOR UNKNOWN INDICATION
  8. DESYREL [Concomitant]
     Indication: DEPRESSION
  9. ADALIMUMAB [Concomitant]
     Indication: RHEUMATOID ARTHRITIS
     Route: 058
     Dates: start: 20070101, end: 20090601
  10. ADALIMUMAB [Concomitant]
     Route: 048
     Dates: start: 20090801

REACTIONS (1)
  - UNEVALUABLE EVENT [None]
